FAERS Safety Report 9263580 (Version 1)
Quarter: 2013Q2

REPORT INFORMATION
  Report Type: Spontaneous
  Country: DE (occurrence: DE)
  Receive Date: 20130430
  Receipt Date: 20130430
  Transmission Date: 20140414
  Serious: Yes (Hospitalization)
  Sender: FDA-Public Use
  Company Number: DE-TEVA-398826GER

PATIENT
  Age: 55 Year
  Sex: Female

DRUGS (7)
  1. QUETIAPINE [Suspect]
     Dosage: 150 MILLIGRAM DAILY;
     Route: 048
  2. CLOMIPRAMINE [Interacting]
     Dosage: 50 MILLIGRAM DAILY;
     Route: 048
     Dates: start: 20120716, end: 20120729
  3. CLOMIPRAMINE [Interacting]
     Dosage: 100 MILLIGRAM DAILY;
     Route: 048
     Dates: start: 20120730, end: 20120801
  4. CLOMIPRAMINE [Interacting]
     Dosage: 50 MILLIGRAM DAILY;
     Route: 048
     Dates: start: 20120802, end: 20120806
  5. PREGABALIN [Concomitant]
     Dosage: 225 MILLIGRAM DAILY;
     Route: 048
  6. LAMOTRIGIN [Concomitant]
     Dosage: 150 MILLIGRAM DAILY;
     Route: 048
     Dates: start: 20120802
  7. EUTHYROX [Concomitant]
     Dosage: 50 MICROGRAM DAILY;
     Route: 048

REACTIONS (2)
  - Urinary hesitation [Recovered/Resolved]
  - Drug interaction [Recovered/Resolved]
